FAERS Safety Report 16215234 (Version 1)
Quarter: 2019Q2

REPORT INFORMATION
  Report Type: Spontaneous
  Country: US (occurrence: US)
  Receive Date: 20190419
  Receipt Date: 20190419
  Transmission Date: 20190711
  Serious: No
  Sender: FDA-Public Use
  Company Number: US-CELGENEUS-USA-20190404759

PATIENT
  Age: 55 Year
  Sex: Male

DRUGS (1)
  1. OTEZLA [Suspect]
     Active Substance: APREMILAST
     Indication: PRODUCT USED FOR UNKNOWN INDICATION
     Dosage: 10/20/30 MILLIGRAM
     Route: 048
     Dates: start: 201904

REACTIONS (5)
  - Frequent bowel movements [Recovering/Resolving]
  - Joint swelling [Unknown]
  - Back pain [Recovering/Resolving]
  - Rhinorrhoea [Recovering/Resolving]
  - Pyrexia [Recovering/Resolving]

NARRATIVE: CASE EVENT DATE: 201904
